FAERS Safety Report 5083624-0 (Version None)
Quarter: 2006Q3

REPORT INFORMATION
  Report Type: 
  Country: None (occurrence: None)
  Receive Date: 20060818
  Receipt Date: 20060515
  Transmission Date: 20061208
  Serious: Yes (Hospitalization)
  Sender: FDA-Public Use
  Company Number: FR-JNJFOC-20060803678

PATIENT
  Sex: Female

DRUGS (4)
  1. IXPRIM [Suspect]
     Indication: BACK PAIN
     Route: 048
  2. BI-PROFENID [Suspect]
     Indication: BACK PAIN
     Route: 048
  3. TETRAZEPAM [Concomitant]
     Indication: BACK PAIN
  4. LANZOR [Concomitant]
     Indication: DRUG USE FOR UNKNOWN INDICATION

REACTIONS (4)
  - GASTROINTESTINAL HAEMORRHAGE [None]
  - LARGE INTESTINAL ULCER [None]
  - MELAENA [None]
  - ULCER [None]
